FAERS Safety Report 24973051 (Version 2)
Quarter: 2025Q4

REPORT INFORMATION
  Report Type: Report from Study
  Country: IN (occurrence: IN)
  Receive Date: 20250216
  Receipt Date: 20251027
  Transmission Date: 20260117
  Serious: Yes (Death, Life-Threatening, Other)
  Sender: AUROBINDO
  Company Number: IN-AUROBINDO-AUR-APL-2025-008657

PATIENT
  Age: 4 Year
  Sex: Male

DRUGS (7)
  1. MELPHALAN [Suspect]
     Active Substance: MELPHALAN
     Indication: Acute myeloid leukaemia
     Dosage: 140 MILLIGRAM/SQ. METER, ON DAY 1
     Route: 065
  2. CYCLOSPORINE [Suspect]
     Active Substance: CYCLOSPORINE
     Indication: Prophylaxis against graft versus host disease
     Dosage: 3 MILLIGRAM/KILOGRAM, TWO DIVIDED DOSES
     Route: 042
  3. CYCLOSPORINE [Suspect]
     Active Substance: CYCLOSPORINE
     Dosage: UNK
     Route: 048
  4. MYCOPHENOLATE MOFETIL [Suspect]
     Active Substance: MYCOPHENOLATE MOFETIL
     Indication: Prophylaxis against graft versus host disease
     Dosage: 15 MILLIGRAM/KILOGRAM, 3 TIMES A DAY
     Route: 048
  5. CYCLOPHOSPHAMIDE [Suspect]
     Active Substance: CYCLOPHOSPHAMIDE
     Indication: Prophylaxis against graft versus host disease
     Dosage: 50 MILLIGRAM/KILOGRAM,  ON DAYS 3 AND 4
     Route: 065
  6. FLUDARABINE [Suspect]
     Active Substance: FLUDARABINE PHOSPHATE
     Indication: Acute myeloid leukaemia
     Dosage: 30 MILLIGRAM/SQ. METER,  FOR FIVE DAYS FROM DAY 6
     Route: 065
  7. BUSULFAN [Suspect]
     Active Substance: BUSULFAN
     Indication: Acute myeloid leukaemia
     Dosage: 0.8 MILLIGRAM/KILOGRAM, FOUR TIMES/DAY
     Route: 065

REACTIONS (5)
  - Haemophagocytic lymphohistiocytosis [Fatal]
  - Bacterial infection [Fatal]
  - Cytomegalovirus infection [Fatal]
  - Rotavirus infection [Fatal]
  - Drug ineffective [Fatal]
